FAERS Safety Report 10046000 (Version 1)
Quarter: 2014Q1

REPORT INFORMATION
  Report Type: Spontaneous
  Country: US (occurrence: US)
  Receive Date: 20140330
  Receipt Date: 20140330
  Transmission Date: 20141002
  Serious: No
  Sender: FDA-Public Use
  Company Number: US-009507513-1403USA009273

PATIENT
  Age: 10 Year
  Sex: Male

DRUGS (3)
  1. DULERA [Suspect]
     Indication: ASTHMA EXERCISE INDUCED
     Dosage: 1 PUFF TWICE A DAY
     Route: 055
     Dates: start: 2014
  2. MONTELUKAST SODIUM [Concomitant]
     Dosage: UNK
  3. VENTOLIN HFA [Concomitant]
     Dosage: UNK

REACTIONS (1)
  - Excessive eye blinking [Unknown]
